FAERS Safety Report 7555492-6 (Version None)
Quarter: 2011Q2

REPORT INFORMATION
  Report Type: 
  Country: None (occurrence: None)
  Receive Date: 20110617
  Receipt Date: 20110614
  Transmission Date: 20111010
  Serious: Yes (Death, Life-Threatening, Hospitalization, Other)
  Sender: FDA-Public Use
  Company Number: US-PFIZER INC-2011096668

PATIENT
  Sex: Male
  Weight: 55.9 kg

DRUGS (8)
  1. FENTANYL [Concomitant]
     Indication: DYSPNOEA
  2. LOPERAMIDE [Concomitant]
     Route: 048
  3. LASIX [Concomitant]
     Dosage: UNK
     Route: 048
     Dates: start: 20090101
  4. CAPECITABINE [Suspect]
     Dosage: 1500 MG BID - 7 DAYS ON/7DAYS OFF
     Dates: start: 20101019, end: 20110425
  5. FENTANYL [Concomitant]
     Indication: PAIN
     Dosage: PATCH
     Dates: start: 20100101
  6. TEMSIROLIMUS [Suspect]
     Dosage: 15 MG, WEEKLY
     Dates: start: 20101019, end: 20110425
  7. FOLIC ACID [Concomitant]
     Dosage: UNK
     Dates: start: 20100101
  8. METOPROLOL [Concomitant]
     Dosage: UNK
     Route: 048
     Dates: start: 20090101

REACTIONS (2)
  - CARDIAC ARREST [None]
  - RESPIRATORY FAILURE [None]
